FAERS Safety Report 12883037 (Version 9)
Quarter: 2017Q4

REPORT INFORMATION
  Report Type: Report from Study
  Country: GB (occurrence: GB)
  Receive Date: 20161025
  Receipt Date: 20171124
  Transmission Date: 20180320
  Serious: Yes (Life-Threatening, Hospitalization)
  Sender: FDA-Public Use
  Company Number: GB-AMGEN-GBRCT2016147917

PATIENT
  Age: 52 Year
  Sex: Female

DRUGS (13)
  1. TALIMOGENE LAHERPAREPVEC [Suspect]
     Active Substance: TALIMOGENE LAHERPAREPVEC
     Dosage: UNK
     Route: 026
     Dates: start: 20160922
  2. AUGMENTIN [Concomitant]
     Active Substance: AMOXICILLIN\CLAVULANATE POTASSIUM
     Dosage: 625 MG, UNK
     Route: 042
     Dates: start: 20160816, end: 20160818
  3. FENTANYL. [Concomitant]
     Active Substance: FENTANYL
     Dosage: 12.5 MUG, UNK
     Route: 062
     Dates: start: 20160812, end: 20161113
  4. COCODAMOL [Concomitant]
     Active Substance: ACETAMINOPHEN\CODEINE PHOSPHATE
     Dosage: UNK
     Route: 048
  5. CODEINE PHOSPHATE [Concomitant]
     Active Substance: CODEINE PHOSPHATE
     Dosage: 60 MG, UNK
     Route: 050
     Dates: start: 2016, end: 20161113
  6. PEMBROLIZUMAB. [Suspect]
     Active Substance: PEMBROLIZUMAB
     Indication: SQUAMOUS CELL CARCINOMA OF HEAD AND NECK
     Dosage: 200 MG, Q3WK
     Route: 042
     Dates: start: 20160818
  7. PEMBROLIZUMAB. [Suspect]
     Active Substance: PEMBROLIZUMAB
     Dosage: UNK
     Route: 042
     Dates: start: 20160922
  8. CITALOPRAM [Concomitant]
     Active Substance: CITALOPRAM HYDROBROMIDE
     Dosage: 10 MG, UNK
     Route: 050
     Dates: start: 20160720, end: 20161113
  9. TALIMOGENE LAHERPAREPVEC [Suspect]
     Active Substance: TALIMOGENE LAHERPAREPVEC
     Indication: SQUAMOUS CELL CARCINOMA OF HEAD AND NECK
     Dosage: 4 ML, Q3WK
     Route: 026
     Dates: start: 20160818
  10. PREGABALIN. [Concomitant]
     Active Substance: PREGABALIN
     Dosage: 75 MG, UNK
     Route: 048
     Dates: start: 201608, end: 20161113
  11. THYROXINE [Concomitant]
     Active Substance: LEVOTHYROXINE
     Dosage: 75 MUG, UNK
     Route: 048
     Dates: start: 2001, end: 20160915
  12. CO-AMOXICLAV [Concomitant]
     Active Substance: AMOXICILLIN\CLAVULANIC ACID
     Dosage: 1.2 G, UNK
     Route: 042
     Dates: start: 20160814, end: 20160816
  13. ORAMORPH [Concomitant]
     Active Substance: MORPHINE SULFATE
     Dosage: 10 TO 20 MG, UNK
     Route: 050
     Dates: start: 201608, end: 20161113

REACTIONS (2)
  - Stridor [Recovered/Resolved]
  - Pneumonia aspiration [Recovered/Resolved]

NARRATIVE: CASE EVENT DATE: 20160823
